FAERS Safety Report 16639333 (Version 1)
Quarter: 2019Q3

REPORT INFORMATION
  Report Type: Spontaneous
  Country: US (occurrence: US)
  Receive Date: 20190726
  Receipt Date: 20190726
  Transmission Date: 20191004
  Serious: No
  Sender: FDA-Public Use
  Company Number: US-ELI_LILLY_AND_COMPANY-US201907009282

PATIENT
  Sex: Female

DRUGS (3)
  1. CYMBALTA [Suspect]
     Active Substance: DULOXETINE HYDROCHLORIDE
     Indication: MERALGIA PARAESTHETICA
     Dosage: 60 MG, DAILY
     Route: 065
     Dates: start: 2014
  2. DULOXETINE. [Suspect]
     Active Substance: DULOXETINE
     Indication: MERALGIA PARAESTHETICA
     Dosage: 30 MG, BID
     Route: 065
     Dates: start: 201906
  3. DULOXETINE. [Suspect]
     Active Substance: DULOXETINE
     Dosage: 30 MG, DAILY
     Route: 065
     Dates: start: 201907

REACTIONS (6)
  - Head discomfort [Unknown]
  - Head discomfort [Recovered/Resolved]
  - Mental fatigue [Unknown]
  - Disturbance in attention [Unknown]
  - Back pain [Unknown]
  - Dizziness [Unknown]
